FAERS Safety Report 10693982 (Version 3)
Quarter: 2015Q1

REPORT INFORMATION
  Report Type: Spontaneous
  Country: TR (occurrence: TR)
  Receive Date: 20150106
  Receipt Date: 20150120
  Transmission Date: 20150721
  Serious: Yes (Other)
  Sender: FDA-Public Use
  Company Number: PHHY2013TR106388

PATIENT
  Age: 50 Year
  Sex: Female

DRUGS (10)
  1. VITALUX [Suspect]
     Active Substance: MINERALS\VITAMINS
     Dosage: UNK
     Route: 065
     Dates: start: 20130925
  2. FOSAMAX [Concomitant]
     Active Substance: ALENDRONATE SODIUM
     Dosage: 70 MG, UNK
     Route: 065
     Dates: start: 20130925
  3. AVELOX [Concomitant]
     Active Substance: MOXIFLOXACIN HYDROCHLORIDE
     Indication: TOOTH DISORDER
     Dosage: UNK UNK, QD
     Route: 065
  4. VENORUTON FORTE [Suspect]
     Active Substance: TROXERUTIN
     Indication: VISION BLURRED
  5. KAPRIL//CAPTOPRIL [Concomitant]
     Indication: PRODUCT USED FOR UNKNOWN INDICATION
     Dosage: UNK UNK, PRN
     Route: 060
  6. FOSAMAX [Concomitant]
     Active Substance: ALENDRONATE SODIUM
     Indication: BONE LOSS
     Dosage: 70 MG, ONCE A WEEK
     Route: 065
  7. VASOFIX [Concomitant]
     Indication: TINNITUS
     Dosage: UNK
     Route: 065
  8. VASTAREL [Concomitant]
     Active Substance: TRIMETAZIDINE DIHYDROCHLORIDE
     Indication: PRODUCT USED FOR UNKNOWN INDICATION
     Dosage: UNK
     Route: 065
  9. VITALUX [Suspect]
     Active Substance: MINERALS\VITAMINS
     Indication: VITAMIN SUPPLEMENTATION
     Dosage: 1X1 IN THE MORNING
     Route: 048
  10. VENORUTON FORTE [Suspect]
     Active Substance: TROXERUTIN
     Indication: VARICOSE VEIN
     Dosage: UNK UNK, BID
     Route: 065

REACTIONS (21)
  - Discomfort [Not Recovered/Not Resolved]
  - Blood potassium decreased [Unknown]
  - Lactose intolerance [Not Recovered/Not Resolved]
  - Muscle contractions involuntary [Not Recovered/Not Resolved]
  - Restless legs syndrome [Not Recovered/Not Resolved]
  - Heart rate increased [Not Recovered/Not Resolved]
  - Concussion [Recovered/Resolved]
  - Pollakiuria [Not Recovered/Not Resolved]
  - Tremor [Not Recovered/Not Resolved]
  - Swollen tongue [Recovered/Resolved]
  - Gait disturbance [Recovered/Resolved]
  - Varicose vein [Not Recovered/Not Resolved]
  - Palpitations [Not Recovered/Not Resolved]
  - Weight decreased [Not Recovered/Not Resolved]
  - Abdominal pain [Recovered/Resolved]
  - Irritability [Recovered/Resolved]
  - Dysuria [Not Recovered/Not Resolved]
  - Skin discolouration [Not Recovered/Not Resolved]
  - Blood pressure increased [Not Recovered/Not Resolved]
  - Blood iron decreased [Recovered/Resolved]
  - Decreased appetite [Not Recovered/Not Resolved]

NARRATIVE: CASE EVENT DATE: 20130926
